FAERS Safety Report 10797805 (Version 1)
Quarter: 2015Q1

REPORT INFORMATION
  Report Type: Spontaneous
  Country: US (occurrence: US)
  Receive Date: 20150216
  Receipt Date: 20150216
  Transmission Date: 20150721
  Serious: Yes (Hospitalization)
  Sender: FDA-Public Use
  Company Number: US-BRISTOL-MYERS SQUIBB COMPANY-BMS-2015-009668

PATIENT
  Age: 53 Year
  Sex: Male
  Weight: 205 kg

DRUGS (7)
  1. PAXIL [Concomitant]
     Active Substance: PAROXETINE HYDROCHLORIDE
     Indication: DEPRESSION
     Dosage: 40 MG, UNK
     Route: 065
  2. ZOCOR [Concomitant]
     Active Substance: SIMVASTATIN
     Indication: BLOOD CHOLESTEROL
     Route: 065
  3. ABILIFY [Suspect]
     Active Substance: ARIPIPRAZOLE
     Indication: DEPRESSION
     Dosage: 5 MG, UNK
     Route: 065
     Dates: start: 201406
  4. ABILIFY [Suspect]
     Active Substance: ARIPIPRAZOLE
     Indication: ANXIETY
  5. AMBIEN [Concomitant]
     Active Substance: ZOLPIDEM TARTRATE
     Indication: SLEEP DISORDER
     Route: 065
  6. ABILIFY MAINTENA [Suspect]
     Active Substance: ARIPIPRAZOLE
     Indication: DEPRESSION
  7. ABILIFY MAINTENA [Suspect]
     Active Substance: ARIPIPRAZOLE
     Indication: SUICIDAL IDEATION
     Dosage: 400 MG, QD
     Route: 065
     Dates: start: 201404, end: 201404

REACTIONS (10)
  - Suicidal ideation [Recovered/Resolved]
  - Tremor [Unknown]
  - Restless legs syndrome [Unknown]
  - Off label use [Unknown]
  - Wrong technique in drug usage process [Unknown]
  - Anxiety [Unknown]
  - Restlessness [Unknown]
  - Heart rate increased [Unknown]
  - Insomnia [Unknown]
  - Muscle twitching [Unknown]

NARRATIVE: CASE EVENT DATE: 201404
